FAERS Safety Report 7244614-2 (Version None)
Quarter: 2011Q1

REPORT INFORMATION
  Report Type: 
  Country: None (occurrence: None)
  Receive Date: 20110125
  Receipt Date: 20110113
  Transmission Date: 20110831
  Serious: Yes (Other)
  Sender: FDA-Public Use
  Company Number: KR-GENENTECH-310930

PATIENT
  Weight: 1.7 kg

DRUGS (2)
  1. RANIBIZUMAB [Suspect]
     Indication: RETINOPATHY OF PREMATURITY
     Dosage: 0.3 MG, UNK
     Route: 031
  2. LASER THERAPY [Suspect]
     Indication: PRODUCT USED FOR UNKNOWN INDICATION

REACTIONS (1)
  - RETINAL DETACHMENT [None]
